FAERS Safety Report 4621460-7 (Version None)
Quarter: 2005Q2

REPORT INFORMATION
  Report Type: 
  Country: None (occurrence: None)
  Receive Date: 20050318
  Receipt Date: 20040630
  Transmission Date: 20051028
  Serious: Yes (Other)
  Sender: FDA-Public Use
  Company Number: 2004214162US

PATIENT

DRUGS (1)
  1. XALATAN [Suspect]
     Dosage: 1 GTT, QD, OPHTHALMIC
     Route: 047

REACTIONS (1)
  - KERATITIS HERPETIC [None]
